FAERS Safety Report 15444932 (Version 1)
Quarter: 2018Q3

REPORT INFORMATION
  Report Type: Spontaneous
  Country: US (occurrence: US)
  Receive Date: 20180928
  Receipt Date: 20180928
  Transmission Date: 20181010
  Serious: No
  Sender: FDA-Public Use
  Company Number: US-AMGEN-USASP2018057417

PATIENT
  Age: 78 Year
  Sex: Female

DRUGS (1)
  1. PROLIA [Suspect]
     Active Substance: DENOSUMAB
     Indication: ARTHRITIS
     Dosage: 60 MG, Q6MO
     Route: 065
     Dates: start: 201711

REACTIONS (3)
  - Arthralgia [Unknown]
  - Dental caries [Unknown]
  - Off label use [Unknown]

NARRATIVE: CASE EVENT DATE: 201711
